FAERS Safety Report 6169629-7 (Version None)
Quarter: 2009Q2

REPORT INFORMATION
  Report Type: 
  Country: None (occurrence: None)
  Receive Date: 20090424
  Receipt Date: 20090204
  Transmission Date: 20091009
  Serious: No
  Sender: FDA-Public Use
  Company Number: ALL1-2009-00292

PATIENT
  Age: 19 Year
  Sex: Male
  Weight: 81.6 kg

DRUGS (6)
  1. VYVANSE [Suspect]
     Indication: ATTENTION DEFICIT/HYPERACTIVITY DISORDER
     Dosage: SEE IMAGE, ORAL
     Route: 048
     Dates: start: 20080701, end: 20080701
  2. VYVANSE [Suspect]
     Indication: ATTENTION DEFICIT/HYPERACTIVITY DISORDER
     Dosage: SEE IMAGE, ORAL
     Route: 048
     Dates: start: 20080801, end: 20080901
  3. VYVANSE [Suspect]
     Indication: ATTENTION DEFICIT/HYPERACTIVITY DISORDER
     Dosage: SEE IMAGE, ORAL
     Route: 048
     Dates: end: 20090101
  4. VYVANSE [Suspect]
     Indication: ATTENTION DEFICIT/HYPERACTIVITY DISORDER
     Dosage: SEE IMAGE, ORAL
     Route: 048
     Dates: start: 20090101, end: 20090201
  5. VYVANSE [Suspect]
     Indication: ATTENTION DEFICIT/HYPERACTIVITY DISORDER
     Dosage: SEE IMAGE, ORAL
     Route: 048
     Dates: start: 20080901
  6. ALBUTEROL [Concomitant]

REACTIONS (10)
  - ANXIETY [None]
  - DISTURBANCE IN ATTENTION [None]
  - INAPPROPRIATE SCHEDULE OF DRUG ADMINISTRATION [None]
  - INSOMNIA [None]
  - INTENTIONAL DRUG MISUSE [None]
  - INTENTIONAL OVERDOSE [None]
  - JUDGEMENT IMPAIRED [None]
  - PSYCHOMOTOR HYPERACTIVITY [None]
  - TACHYPHRENIA [None]
  - TREMOR [None]
